FAERS Safety Report 9410804 (Version 1)
Quarter: 2013Q3

REPORT INFORMATION
  Report Type: Other
  Country: US (occurrence: US)
  Receive Date: 20130719
  Receipt Date: 20130719
  Transmission Date: 20140515
  Serious: Yes (Other)
  Sender: FDA-Public Use
  Company Number: US-BAUSCH-BL-2013-004209

PATIENT
  Age: 47 Year
  Sex: Male

DRUGS (2)
  1. FLUOCINOLONE ACETONIDE INTRAVITREAL IMPLANT (0.5 MG) [Suspect]
     Indication: UVEITIS
     Dosage: IMPLANT; RIGHT EYE
  2. FLUOCINOLONE ACETONIDE INTRAVITREAL IMPLANT (0.5 MG) [Suspect]
     Indication: AUTOIMMUNE RETINOPATHY
     Dosage: IMPLANT; LEFT EYE

REACTIONS (2)
  - Device dislocation [Recovered/Resolved]
  - Retinal pigmentation [Unknown]
